FAERS Safety Report 19069330 (Version 3)
Quarter: 2022Q3

REPORT INFORMATION
  Report Type: Report from Study
  Country: CA (occurrence: CA)
  Receive Date: 20210329
  Receipt Date: 20220819
  Transmission Date: 20221027
  Serious: Yes (Hospitalization)
  Sender: FDA-Public Use
  Company Number: CA-BAUSCH-BL-2021-009829

PATIENT
  Sex: Male
  Weight: 145.13 kg

DRUGS (11)
  1. CONTRAVE [Suspect]
     Active Substance: BUPROPION HYDROCHLORIDE\NALTREXONE HYDROCHLORIDE
     Indication: Weight control
     Dosage: 90 MG/ 8 MG; ONE TABLET IN THE MORNING
     Route: 048
     Dates: start: 202102, end: 20210222
  2. CONTRAVE [Suspect]
     Active Substance: BUPROPION HYDROCHLORIDE\NALTREXONE HYDROCHLORIDE
     Dosage: SECOND ATTEMPT
     Route: 048
     Dates: start: 2021, end: 2021
  3. CONTRAVE [Suspect]
     Active Substance: BUPROPION HYDROCHLORIDE\NALTREXONE HYDROCHLORIDE
     Dosage: 90 MG/8 MG; 2 TABLETS TWO TIMES A DAY
     Route: 048
     Dates: start: 20210418, end: 20210523
  4. CONTRAVE [Suspect]
     Active Substance: BUPROPION HYDROCHLORIDE\NALTREXONE HYDROCHLORIDE
     Dosage: 90 MG/8 MG; 1 TABLETS TWICE DAILY, 1 TABLET IN THE MORNING, 1 TABLET IN THE EVENING.
     Route: 048
     Dates: start: 20210524
  5. CONTRAVE [Suspect]
     Active Substance: BUPROPION HYDROCHLORIDE\NALTREXONE HYDROCHLORIDE
     Dosage: 90 MG/ 8 MG; 1 TABLET IN THE MORNING
     Route: 048
     Dates: start: 20210920
  6. OZEMPIC [Suspect]
     Active Substance: SEMAGLUTIDE
     Indication: Weight control
     Dosage: 1 IN 1 WK, ROUTE :- INJECTION
     Route: 050
     Dates: end: 20210301
  7. INVOKANA [Suspect]
     Active Substance: CANAGLIFLOZIN
     Indication: Diabetes mellitus
     Dosage: 1 IN 1 D
     Route: 048
     Dates: end: 20210301
  8. METFORMIN [Concomitant]
     Active Substance: METFORMIN HYDROCHLORIDE
     Indication: Diabetes mellitus
     Dosage: 1 IN 1 D
     Route: 048
     Dates: start: 20210301
  9. RAMIPRIL [Concomitant]
     Active Substance: RAMIPRIL
     Indication: Hypertension
     Dosage: 1 IN 1 D
     Route: 048
     Dates: start: 20210301
  10. AMITRIPTYLINE [Concomitant]
     Active Substance: AMITRIPTYLINE
     Indication: Antidepressant therapy
     Dosage: 1 IN 1 D
     Route: 048
     Dates: start: 20210301
  11. ATORVASTATIN [Concomitant]
     Active Substance: ATORVASTATIN
     Indication: Blood cholesterol increased
     Dosage: 1 IN 1 D
     Route: 048
     Dates: start: 20210301

REACTIONS (21)
  - Urinary tract infection [Recovered/Resolved]
  - Mobility decreased [Unknown]
  - Anger [Recovering/Resolving]
  - Ageusia [Unknown]
  - Anosmia [Unknown]
  - Sensory loss [Unknown]
  - General physical health deterioration [Unknown]
  - Renal pain [Not Recovered/Not Resolved]
  - Decreased appetite [Recovering/Resolving]
  - Back pain [Not Recovered/Not Resolved]
  - Road traffic accident [Unknown]
  - Vitamin B12 decreased [Not Recovered/Not Resolved]
  - Neck injury [Not Recovered/Not Resolved]
  - Arthralgia [Not Recovered/Not Resolved]
  - Affective disorder [Not Recovered/Not Resolved]
  - Depression [Not Recovered/Not Resolved]
  - Abnormal dreams [Unknown]
  - Nightmare [Not Recovered/Not Resolved]
  - Condition aggravated [Not Recovered/Not Resolved]
  - Middle insomnia [Not Recovered/Not Resolved]
  - Insomnia [Not Recovered/Not Resolved]

NARRATIVE: CASE EVENT DATE: 20210101
